FAERS Safety Report 7290619-5 (Version None)
Quarter: 2011Q1

REPORT INFORMATION
  Report Type: 
  Country: None (occurrence: None)
  Receive Date: 20110214
  Receipt Date: 20110209
  Transmission Date: 20110831
  Serious: Yes (Death, Other)
  Sender: FDA-Public Use
  Company Number: FR-ASTRAZENECA-2011SE08135

PATIENT
  Age: 0 Week

DRUGS (6)
  1. SOLUPRED [Suspect]
     Indication: PROCTOCOLITIS
     Route: 048
     Dates: start: 20090625
  2. COLOFOAM [Suspect]
     Indication: PROCTOCOLITIS
     Route: 054
     Dates: start: 20090625
  3. REMICADE [Suspect]
     Indication: PROCTOCOLITIS
     Route: 042
     Dates: start: 20090813, end: 20090827
  4. CALCIUM CARBONATE [Suspect]
     Indication: PROPHYLAXIS
     Route: 065
     Dates: start: 20090625
  5. FIVASA [Suspect]
     Indication: PROCTOCOLITIS
     Route: 048
  6. NEXIUM [Suspect]
     Indication: PROPHYLAXIS
     Route: 048
     Dates: start: 20090625

REACTIONS (1)
  - LISTERIOSIS [None]
